FAERS Safety Report 11132310 (Version 1)
Quarter: 2015Q2

REPORT INFORMATION
  Report Type: Spontaneous
  Country: US (occurrence: None)
  Receive Date: 20150521
  Receipt Date: 20150521
  Transmission Date: 20150821
  Serious: Yes (Life-Threatening, Disabling, Other)
  Sender: FDA-Public Use
  Company Number: None

PATIENT
  Sex: Female

DRUGS (3)
  1. D-3 [Concomitant]
     Active Substance: CHOLECALCIFEROL
  2. PROZAC [Concomitant]
     Active Substance: FLUOXETINE HYDROCHLORIDE
  3. CIPROFLOXACIN. [Suspect]
     Active Substance: CIPROFLOXACIN

REACTIONS (8)
  - Multiple chemical sensitivity [None]
  - Impaired work ability [None]
  - Pain in extremity [None]
  - Balance disorder [None]
  - Tinnitus [None]
  - Meniere^s disease [None]
  - Dyspnoea [None]
  - Rash [None]
